FAERS Safety Report 17219837 (Version 1)
Quarter: 2019Q4

REPORT INFORMATION
  Report Type: Spontaneous
  Country: US (occurrence: US)
  Receive Date: 20191231
  Receipt Date: 20191231
  Transmission Date: 20200122
  Serious: No
  Sender: FDA-Public Use
  Company Number: US-BIOGEN-2019BI00802498

PATIENT
  Age: 73 Year
  Sex: Female

DRUGS (1)
  1. PLEGRIDY [Suspect]
     Active Substance: PEGINTERFERON BETA-1A
     Indication: MULTIPLE SCLEROSIS
     Route: 065

REACTIONS (8)
  - Fear [Not Recovered/Not Resolved]
  - Road traffic accident [Recovered/Resolved]
  - General physical health deterioration [Not Recovered/Not Resolved]
  - Cough [Not Recovered/Not Resolved]
  - Multiple allergies [Not Recovered/Not Resolved]
  - Fall [Recovered/Resolved]
  - Clumsiness [Not Recovered/Not Resolved]
  - Motor dysfunction [Not Recovered/Not Resolved]

NARRATIVE: CASE EVENT DATE: 2019
